FAERS Safety Report 19308903 (Version 1)
Quarter: 2021Q2

REPORT INFORMATION
  Report Type: Spontaneous
  Country: GB (occurrence: GB)
  Receive Date: 20210526
  Receipt Date: 20210526
  Transmission Date: 20210717
  Serious: Yes (Hospitalization, Disabling, Other)
  Sender: FDA-Public Use
  Company Number: GB-TEVA-2021-GB-1913829

PATIENT
  Age: 55 Year
  Sex: Male
  Weight: 96 kg

DRUGS (2)
  1. MORPHINE [Concomitant]
     Active Substance: MORPHINE
  2. GABAPENTIN. [Suspect]
     Active Substance: GABAPENTIN
     Dosage: 3 DOSAGE FORMS DAILY;
     Route: 065

REACTIONS (4)
  - Screaming [Recovered/Resolved]
  - Nerve injury [Recovered/Resolved]
  - Pain in extremity [Recovered/Resolved]
  - Neuralgic amyotrophy [Not Recovered/Not Resolved]

NARRATIVE: CASE EVENT DATE: 20210309
